FAERS Safety Report 10214505 (Version 1)
Quarter: 2014Q2

REPORT INFORMATION
  Report Type: Spontaneous
  Country: US (occurrence: None)
  Receive Date: 20140602
  Receipt Date: 20140602
  Transmission Date: 20141212
  Serious: Yes (Other)
  Sender: FDA-Public Use
  Company Number: None

PATIENT
  Age: 69 Year
  Sex: Male
  Weight: 100.1 kg

DRUGS (21)
  1. OFATUMUMAB [Suspect]
     Indication: CHRONIC LYMPHOCYTIC LEUKAEMIA
     Route: 042
     Dates: start: 20130827, end: 20140310
  2. ALEMTUZUMAB [Suspect]
     Indication: CHRONIC LYMPHOCYTIC LEUKAEMIA
     Dosage: 30MC SC TIW
     Route: 058
     Dates: start: 20131216, end: 20140319
  3. ACYCLOVIR [Concomitant]
  4. ASPIRIN [Concomitant]
  5. ATOZVASTATIN [Concomitant]
  6. BACTRIM DS [Concomitant]
  7. FERROUS SULFATE [Concomitant]
  8. PALATE [Concomitant]
  9. FUROSEMIDE [Concomitant]
  10. GUAIFENESIN [Concomitant]
  11. LANTUS [Concomitant]
  12. LATANOPROST [Concomitant]
  13. LEVOFLOXACIN [Concomitant]
  14. LISINOPRIL [Concomitant]
  15. METFORMIN [Concomitant]
  16. METOPROLOL [Concomitant]
  17. NOVOLOG [Concomitant]
  18. PAROXETINE [Concomitant]
  19. PRANDIN [Concomitant]
  20. VITAMIN B [Concomitant]
  21. VIT [Concomitant]

REACTIONS (7)
  - Dehydration [None]
  - Cough [None]
  - Pyrexia [None]
  - Muscular weakness [None]
  - Pneumonia [None]
  - Diffuse large B-cell lymphoma [None]
  - Epstein-Barr virus test positive [None]
